FAERS Safety Report 5265963-3 (Version None)
Quarter: 2007Q1

REPORT INFORMATION
  Report Type: 
  Country: None (occurrence: None)
  Receive Date: 20070315
  Receipt Date: 20070305
  Transmission Date: 20070707
  Serious: Yes (Other)
  Sender: FDA-Public Use
  Company Number: PHFR2007GB00970

PATIENT
  Age: 74 Year
  Sex: Female
  Weight: 90 kg

DRUGS (12)
  1. ZOLEDRONIC ACID [Suspect]
     Indication: METASTASES TO BONE
     Dosage: 4 MG/DAY
     Route: 042
     Dates: start: 20040723, end: 20060724
  2. ADCAL-D3 [Concomitant]
     Route: 065
  3. AMITRIPTYLINE HCL [Concomitant]
     Route: 065
  4. ACETYLSALICYLIC ACID SRT [Concomitant]
     Route: 065
  5. ATENOLOL [Concomitant]
     Route: 065
  6. BACLOFEN [Concomitant]
     Route: 065
  7. EXEMESTANE [Concomitant]
     Indication: BREAST CANCER
     Dosage: 25 MG/DAY
     Route: 048
  8. GABAPENTIN [Concomitant]
     Indication: BONE PAIN
     Route: 048
  9. LEVOTHYROXINE SODIUM [Concomitant]
     Route: 065
  10. OXYCODONE [Concomitant]
     Indication: BONE PAIN
     Route: 048
  11. OXYNORM [Concomitant]
     Indication: BONE PAIN
     Route: 048
  12. ACETAMINOPHEN [Concomitant]
     Route: 065

REACTIONS (6)
  - EATING DISORDER [None]
  - OSTEONECROSIS [None]
  - PAIN [None]
  - SURGERY [None]
  - SWELLING [None]
  - TOOTH EXTRACTION [None]
